FAERS Safety Report 13574025 (Version 2)
Quarter: 2017Q3

REPORT INFORMATION
  Report Type: Spontaneous
  Country: IT (occurrence: IT)
  Receive Date: 20170523
  Receipt Date: 20170726
  Transmission Date: 20171127
  Serious: Yes (Hospitalization)
  Sender: FDA-Public Use
  Company Number: IT-GILEAD-2017-0273419

PATIENT
  Age: 65 Year
  Sex: Male
  Weight: 69 kg

DRUGS (12)
  1. ATORVASTATINE                      /01326101/ [Concomitant]
     Active Substance: ATORVASTATIN
  2. HARVONI [Suspect]
     Active Substance: LEDIPASVIR\SOFOSBUVIR
     Indication: HEPATITIS C
     Dosage: 490 MG, QD
     Route: 048
     Dates: start: 20170419, end: 20170513
  3. VALSARTAN. [Concomitant]
     Active Substance: VALSARTAN
  4. INSULIN [Concomitant]
     Active Substance: INSULIN NOS
  5. VENITRIN [Concomitant]
     Active Substance: NITROGLYCERIN
  6. CLEXANE [Concomitant]
     Active Substance: ENOXAPARIN SODIUM
  7. RANEXA [Concomitant]
     Active Substance: RANOLAZINE
  8. LUVION                             /00252501/ [Concomitant]
     Active Substance: CANRENOIC ACID
  9. NORMIX [Concomitant]
     Active Substance: RIFAXIMIN
  10. NEBIVOLOL. [Concomitant]
     Active Substance: NEBIVOLOL
  11. FUROSEMIDE. [Concomitant]
     Active Substance: FUROSEMIDE
  12. ESOMEPRAZOLE SODIUM. [Concomitant]
     Active Substance: ESOMEPRAZOLE SODIUM

REACTIONS (1)
  - Anaemia [Not Recovered/Not Resolved]

NARRATIVE: CASE EVENT DATE: 20170511
